FAERS Safety Report 9598492 (Version 1)
Quarter: 2013Q4

REPORT INFORMATION
  Report Type: Spontaneous
  Country: US (occurrence: US)
  Receive Date: 20131004
  Receipt Date: 20131004
  Transmission Date: 20140711
  Serious: No
  Sender: FDA-Public Use
  Company Number: US-AMGEN-USASP2013023788

PATIENT
  Age: 7 Year
  Sex: Male
  Weight: 22.68 kg

DRUGS (4)
  1. ENBREL [Suspect]
     Indication: PRODUCT USED FOR UNKNOWN INDICATION
     Dosage: 25 MG, QWK
     Route: 058
  2. METHOTREXATE [Concomitant]
     Dosage: 2.5 UNK, UNK
  3. IBUPROFEN [Concomitant]
     Dosage: 800 MG, UNK
  4. CLONIDINE [Concomitant]
     Dosage: 0.1 MG, UNK

REACTIONS (2)
  - Rash papular [Unknown]
  - Rash pruritic [Unknown]
